FAERS Safety Report 6444343-9 (Version None)
Quarter: 2009Q4

REPORT INFORMATION
  Report Type: 
  Country: None (occurrence: None)
  Receive Date: 20091118
  Receipt Date: 20091112
  Transmission Date: 20100525
  Serious: Yes (Death, Hospitalization)
  Sender: FDA-Public Use
  Company Number: US-ELI_LILLY_AND_COMPANY-US200911003418

PATIENT

DRUGS (1)
  1. HUMULIN 70/30 [Suspect]
     Dates: start: 20090501

REACTIONS (1)
  - INFLUENZA [None]
